FAERS Safety Report 8599410-0 (Version None)
Quarter: 2012Q3

REPORT INFORMATION
  Report Type: 
  Country: None (occurrence: None)
  Receive Date: 20120816
  Receipt Date: 20120808
  Transmission Date: 20120928
  Serious: Yes (Other)
  Sender: FDA-Public Use
  Company Number: PHHY2012ZA069799

PATIENT
  Sex: Male

DRUGS (4)
  1. SYMMETREL [Suspect]
     Indication: PARKINSON'S DISEASE
     Dosage: 100MG ONE CAPSULE AFTER BREAKFAST AND ONE AFTER LUNCH
     Dates: start: 20120501
  2. CARBILEV [Concomitant]
  3. BISOPROLOL FUMARATE [Concomitant]
  4. DIOVAN HCT [Suspect]
     Indication: HYPERTENSION
     Dosage: 1 DF, UNK

REACTIONS (3)
  - HAEMARTHROSIS [None]
  - PRURITUS [None]
  - HAEMORRHAGE [None]
